FAERS Safety Report 6257655-9 (Version None)
Quarter: 2009Q3

REPORT INFORMATION
  Report Type: 
  Country: None (occurrence: None)
  Receive Date: 20090702
  Receipt Date: 20090624
  Transmission Date: 20100115
  Serious: Yes (Hospitalization, Other)
  Sender: FDA-Public Use
  Company Number: 2009AL004247

PATIENT
  Age: 67 Year
  Sex: Male

DRUGS (14)
  1. FLUOXETINE [Suspect]
     Indication: DEPRESSION
     Dosage: 40 MG; QD; PO
     Route: 048
     Dates: start: 20090501
  2. TYGACIL [Concomitant]
  3. MELATONIN [Concomitant]
  4. ACETAZOLAMIDE [Concomitant]
  5. CIPROFLOXACIN [Concomitant]
  6. ACETYLSALICYLIC ACID SRT [Concomitant]
  7. SIMVASTATIN [Concomitant]
  8. ALBUTEROL [Concomitant]
  9. RAMIPRIL [Concomitant]
  10. SPIRONOLACTONE [Concomitant]
  11. BISOPROLOL FUMARATE [Concomitant]
  12. DIGOXIN [Concomitant]
  13. FUROSEMIDE [Concomitant]
  14. LANSOPRAZOLE [Concomitant]

REACTIONS (2)
  - ALANINE AMINOTRANSFERASE INCREASED [None]
  - ASPARTATE AMINOTRANSFERASE INCREASED [None]
